FAERS Safety Report 13456731 (Version 5)
Quarter: 2017Q3

REPORT INFORMATION
  Report Type: Report from Study
  Country: US (occurrence: US)
  Receive Date: 20170418
  Receipt Date: 20170712
  Transmission Date: 20171127
  Serious: Yes (Hospitalization, Other)
  Sender: FDA-Public Use
  Company Number: US-GILEAD-2017-0267719

PATIENT
  Age: 91 Year
  Sex: Male
  Weight: 80.73 kg

DRUGS (1)
  1. AMBRISENTAN [Suspect]
     Active Substance: AMBRISENTAN
     Indication: PULMONARY ARTERIAL HYPERTENSION
     Dosage: 5 MG, UNK
     Route: 065
     Dates: start: 20170320

REACTIONS (5)
  - Right ventricular failure [Unknown]
  - Oedema peripheral [Unknown]
  - Oedema peripheral [Recovered/Resolved]
  - Urinary tract infection [Unknown]
  - Pulmonary hypertension [Unknown]

NARRATIVE: CASE EVENT DATE: 20170303
